FAERS Safety Report 8270293-1 (Version None)
Quarter: 2012Q2

REPORT INFORMATION
  Report Type: 
  Country: None (occurrence: None)
  Receive Date: 20120410
  Receipt Date: 20120403
  Transmission Date: 20120825
  Serious: Yes (Hospitalization)
  Sender: FDA-Public Use
  Company Number: CA-SANOFI-AVENTIS-2012SA024283

PATIENT
  Age: 53 Year
  Sex: Male
  Weight: 86.4 kg

DRUGS (18)
  1. METOCLOPRAMIDE [Concomitant]
     Indication: PROPHYLAXIS
     Route: 048
     Dates: start: 20120118
  2. OXAZEPAM [Concomitant]
     Indication: PROPHYLAXIS
     Route: 048
  3. CABAZITAXEL [Suspect]
     Route: 042
     Dates: start: 20120313, end: 20120313
  4. PREDNISONE TAB [Suspect]
     Indication: PROSTATE CANCER METASTATIC
     Route: 065
     Dates: start: 20120208
  5. AMLODIPINE [Concomitant]
     Indication: PROPHYLAXIS
     Route: 048
  6. PANTOPRAZOLE [Concomitant]
     Indication: PROPHYLAXIS
     Route: 048
     Dates: start: 20120118
  7. SEPTRA [Concomitant]
     Indication: DRUG THERAPY
     Route: 048
     Dates: start: 20120302, end: 20120312
  8. ONDANSETRON [Concomitant]
     Indication: PROPHYLAXIS
     Route: 048
     Dates: start: 20090101
  9. HYDROMORPHONE HCL [Concomitant]
     Indication: DRUG THERAPY
     Route: 040
     Dates: start: 20120124
  10. FLUOXETINE [Concomitant]
     Indication: PROPHYLAXIS
     Route: 048
  11. SENOKOT /UNK/ [Concomitant]
     Indication: PROPHYLAXIS
     Route: 048
     Dates: start: 20120117
  12. LACTULOSE [Concomitant]
     Indication: PROPHYLAXIS
     Route: 048
     Dates: start: 20120123
  13. CIPROFLOXACIN HYDROCHLORIDE [Concomitant]
     Indication: PROPHYLAXIS
     Route: 048
     Dates: start: 20120313
  14. CABAZITAXEL [Suspect]
     Indication: PROSTATE CANCER METASTATIC
     Route: 042
     Dates: start: 20120208, end: 20120208
  15. TRAZODONE HCL [Concomitant]
     Indication: PROPHYLAXIS
     Route: 048
     Dates: start: 20110101
  16. METHOTRIMEPRAZINE [Concomitant]
     Indication: PROPHYLAXIS
     Route: 048
     Dates: start: 20120111
  17. GABAPENTIN [Concomitant]
     Indication: PROPHYLAXIS
     Route: 048
     Dates: start: 20120126
  18. PROCHLORPERAZINE [Concomitant]
     Indication: PROPHYLAXIS
     Route: 042
     Dates: start: 20111218

REACTIONS (2)
  - FALL [None]
  - PYREXIA [None]
